FAERS Safety Report 25722381 (Version 2)
Quarter: 2025Q3

REPORT INFORMATION
  Report Type: Spontaneous
  Country: US (occurrence: US)
  Receive Date: 20250825
  Receipt Date: 20250908
  Transmission Date: 20251020
  Serious: No
  Sender: VERTEX
  Company Number: US-VERTEX PHARMACEUTICALS-2025-013488

PATIENT
  Age: 65 Year
  Sex: Female

DRUGS (3)
  1. JOURNAVX [Suspect]
     Active Substance: SUZETRIGINE
     Indication: Pain
     Dosage: 50 MG, BID
     Route: 048
     Dates: start: 20250808, end: 20250811
  2. FLONASE [Concomitant]
     Active Substance: FLUTICASONE PROPIONATE
  3. LOSARTAN [Concomitant]
     Active Substance: LOSARTAN

REACTIONS (1)
  - Urinary retention [Recovered/Resolved]

NARRATIVE: CASE EVENT DATE: 20250811
